FAERS Safety Report 25305872 (Version 1)
Quarter: 2025Q2

REPORT INFORMATION
  Report Type: Spontaneous
  Country: KR (occurrence: KR)
  Receive Date: 20250513
  Receipt Date: 20250513
  Transmission Date: 20250717
  Serious: Yes (Other)
  Sender: MYLAN
  Company Number: KR-MYLANLABS-2025M1040170

PATIENT
  Age: 37 Year
  Sex: Male

DRUGS (16)
  1. GABAPENTIN [Suspect]
     Active Substance: GABAPENTIN
     Indication: Hiccups
  2. GABAPENTIN [Suspect]
     Active Substance: GABAPENTIN
     Route: 065
  3. GABAPENTIN [Suspect]
     Active Substance: GABAPENTIN
     Route: 065
  4. GABAPENTIN [Suspect]
     Active Substance: GABAPENTIN
  5. METOCLOPRAMIDE [Suspect]
     Active Substance: METOCLOPRAMIDE
     Indication: Hiccups
  6. METOCLOPRAMIDE [Suspect]
     Active Substance: METOCLOPRAMIDE
     Route: 065
  7. METOCLOPRAMIDE [Suspect]
     Active Substance: METOCLOPRAMIDE
     Route: 065
  8. METOCLOPRAMIDE [Suspect]
     Active Substance: METOCLOPRAMIDE
  9. CISAPRIDE [Suspect]
     Active Substance: CISAPRIDE
     Indication: Hiccups
  10. CISAPRIDE [Suspect]
     Active Substance: CISAPRIDE
     Route: 065
  11. CISAPRIDE [Suspect]
     Active Substance: CISAPRIDE
     Route: 065
  12. CISAPRIDE [Suspect]
     Active Substance: CISAPRIDE
  13. BACLOFEN [Suspect]
     Active Substance: BACLOFEN
     Indication: Hiccups
  14. BACLOFEN [Suspect]
     Active Substance: BACLOFEN
     Route: 065
  15. BACLOFEN [Suspect]
     Active Substance: BACLOFEN
     Route: 065
  16. BACLOFEN [Suspect]
     Active Substance: BACLOFEN

REACTIONS (2)
  - Drug ineffective for unapproved indication [Unknown]
  - Off label use [Unknown]
